FAERS Safety Report 5731826-X (Version None)
Quarter: 2008Q2

REPORT INFORMATION
  Report Type: 
  Country: None (occurrence: None)
  Receive Date: 20080508
  Receipt Date: 20080505
  Transmission Date: 20081010
  Serious: Yes (Hospitalization, Disabling)
  Sender: FDA-Public Use
  Company Number: A0726190A

PATIENT
  Age: 37 Year
  Sex: Female

DRUGS (2)
  1. BUPROPION HCL [Suspect]
     Indication: DEPRESSION
     Dosage: 300MG IN THE MORNING
     Route: 048
     Dates: start: 20061001
  2. SPIRONOLACTONE [Concomitant]
     Dosage: 50MG PER DAY

REACTIONS (4)
  - CHEST PAIN [None]
  - DYSPNOEA [None]
  - HEPATITIS [None]
  - NAUSEA [None]
